FAERS Safety Report 10088401 (Version 1)
Quarter: 2014Q2

REPORT INFORMATION
  Report Type: Spontaneous
  Country: US (occurrence: US)
  Receive Date: 20140421
  Receipt Date: 20140421
  Transmission Date: 20141212
  Serious: No
  Sender: FDA-Public Use
  Company Number: US-BIOGENIDEC-2014BI031308

PATIENT
  Age: 47 Year
  Sex: Female

DRUGS (18)
  1. TECFIDERA [Suspect]
     Indication: MULTIPLE SCLEROSIS
     Route: 048
  2. TECFIDERA [Suspect]
     Indication: MULTIPLE SCLEROSIS
     Route: 048
     Dates: start: 20140306
  3. TECFIDERA [Suspect]
     Indication: MULTIPLE SCLEROSIS
     Dates: start: 20140313
  4. TECFIDERA [Suspect]
     Indication: MULTIPLE SCLEROSIS
     Route: 048
     Dates: start: 201404
  5. B-12 ACTIVE [Concomitant]
  6. CYCLOBENZAPRINE HCL [Concomitant]
  7. DIOVAN HCT [Concomitant]
  8. FISH OIL [Concomitant]
  9. GABAPENTIN [Concomitant]
  10. HYDROCHLOROTHIAZIDE [Concomitant]
  11. IRON [Concomitant]
  12. KLOR-CON 10 [Concomitant]
  13. LABETALOL HCL [Concomitant]
  14. NAPROXEN [Concomitant]
  15. NORVASE [Concomitant]
  16. PROBIOTIC [Concomitant]
  17. TRAMADOL HCL ER [Concomitant]
  18. VITAMIN D [Concomitant]

REACTIONS (7)
  - Intentional underdose [Unknown]
  - Dizziness [Not Recovered/Not Resolved]
  - Disturbance in attention [Not Recovered/Not Resolved]
  - Somnolence [Not Recovered/Not Resolved]
  - Pruritus generalised [Unknown]
  - Faeces soft [Recovered/Resolved]
  - Pruritus [Unknown]
